FAERS Safety Report 5499060-9 (Version None)
Quarter: 2007Q4

REPORT INFORMATION
  Report Type: 
  Country: None (occurrence: None)
  Receive Date: 20071026
  Receipt Date: 20070524
  Transmission Date: 20080405
  Serious: No
  Sender: FDA-Public Use
  Company Number: A0652867A

PATIENT
  Age: 78 Year
  Sex: Female

DRUGS (5)
  1. ADVAIR DISKUS 100/50 [Suspect]
     Indication: CHRONIC OBSTRUCTIVE PULMONARY DISEASE
     Route: 055
     Dates: start: 20030101
  2. ALBUTEROL [Concomitant]
  3. SYNTHROID [Concomitant]
  4. ELMIRON [Concomitant]
  5. ALLERGY SHOTS [Concomitant]

REACTIONS (1)
  - OSTEOPOROSIS [None]
